FAERS Safety Report 10577313 (Version 1)
Quarter: 2014Q4

REPORT INFORMATION
  Report Type: Spontaneous
  Country: US (occurrence: US)
  Receive Date: 20141111
  Receipt Date: 20141111
  Transmission Date: 20150529
  Serious: Yes (Hospitalization, Other)
  Sender: FDA-Public Use
  Company Number: US-ASTRAZENECA-2014SE83431

PATIENT
  Age: 49 Year
  Sex: Female

DRUGS (8)
  1. PROTONIX [Suspect]
     Active Substance: PANTOPRAZOLE SODIUM
     Indication: CROHN^S DISEASE
     Route: 065
  2. VITAMIN B12 [Concomitant]
     Active Substance: CYANOCOBALAMIN
  3. HUMIRA [Suspect]
     Active Substance: ADALIMUMAB
     Indication: CROHN^S DISEASE
     Dosage: 160 MG, LOADING DOSE
     Route: 065
     Dates: start: 2009, end: 2009
  4. NEXIUM [Suspect]
     Active Substance: ESOMEPRAZOLE MAGNESIUM
     Indication: CROHN^S DISEASE
     Route: 048
  5. IMODIUM [Suspect]
     Active Substance: LOPERAMIDE HYDROCHLORIDE
     Indication: DIARRHOEA
     Route: 065
  6. PRILOSEC [Suspect]
     Active Substance: OMEPRAZOLE MAGNESIUM
     Indication: CROHN^S DISEASE
     Route: 048
  7. MORPHINE (NON-AZ PRODUCT) [Suspect]
     Active Substance: MORPHINE
     Route: 065
  8. BONIVA [Concomitant]
     Active Substance: IBANDRONATE SODIUM
     Indication: OSTEOPOROSIS

REACTIONS (13)
  - Postoperative adhesion [Unknown]
  - Arthralgia [Unknown]
  - Dehydration [Unknown]
  - Injection site pain [Unknown]
  - Drug ineffective [Unknown]
  - Drug hypersensitivity [Unknown]
  - Crohn^s disease [Unknown]
  - Injection site erythema [Unknown]
  - Pigmentation disorder [Unknown]
  - Volvulus [Unknown]
  - Intestinal obstruction [Recovered/Resolved]
  - Renal failure [Unknown]
  - Impaired healing [Unknown]

NARRATIVE: CASE EVENT DATE: 2009
